FAERS Safety Report 5380791-6 (Version None)
Quarter: 2007Q3

REPORT INFORMATION
  Report Type: 
  Country: None (occurrence: None)
  Receive Date: 20070706
  Receipt Date: 20070629
  Transmission Date: 20080115
  Serious: Yes (Other)
  Sender: FDA-Public Use
  Company Number: B0477937A

PATIENT
  Age: 42 Year
  Sex: Female

DRUGS (7)
  1. PURINETHOL [Suspect]
     Indication: CROHN'S DISEASE
     Dosage: 50MG PER DAY
     Route: 048
     Dates: start: 20050101
  2. SERETIDE [Suspect]
     Indication: DRUG USE FOR UNKNOWN INDICATION
     Dosage: 500MCG TWICE PER DAY
  3. PREDNISONE [Suspect]
     Indication: ASTHMA
     Dosage: 5MG PER DAY
     Route: 048
  4. SEROPRAM [Suspect]
     Dosage: 20MG PER DAY
     Route: 048
     Dates: start: 20050101
  5. CO-DAFALGAN [Suspect]
     Indication: DRUG USE FOR UNKNOWN INDICATION
     Dosage: 500MG AS REQUIRED
     Route: 048
  6. COLECALCIFEROL [Concomitant]
     Dosage: 8DROP PER DAY
     Route: 048
  7. DAFALGAN [Concomitant]
     Route: 048

REACTIONS (2)
  - DRUG EXPOSURE DURING PREGNANCY [None]
  - PREMATURE BABY [None]
